FAERS Safety Report 6276728-8 (Version None)
Quarter: 2009Q3

REPORT INFORMATION
  Report Type: 
  Country: None (occurrence: None)
  Receive Date: 20090722
  Receipt Date: 20080731
  Transmission Date: 20100115
  Serious: No
  Sender: FDA-Public Use
  Company Number: US-BRISTOL-MYERS SQUIBB COMPANY-14284640

PATIENT
  Age: 46 Year
  Sex: Female

DRUGS (4)
  1. COUMADIN [Suspect]
     Indication: THROMBOSIS
     Dosage: 5MG13JUN-16 10MG17JUN-19 7.5MG20JUN-23 10MG24JUN-25 12.5MG26JUN-28 UNK29JUN-01JUL 15MG2JUL-UK
     Dates: start: 20080613
  2. LOVENOX [Suspect]
     Indication: THROMBOSIS
     Dates: start: 20080613
  3. LOTREL [Concomitant]
     Dates: start: 20060601
  4. ESTRADERM [Concomitant]
     Dates: start: 19921001

REACTIONS (4)
  - EPISTAXIS [None]
  - HEADACHE [None]
  - INJECTION SITE IRRITATION [None]
  - UPPER RESPIRATORY TRACT CONGESTION [None]
